FAERS Safety Report 15135927 (Version 1)
Quarter: 2018Q3

REPORT INFORMATION
  Report Type: Spontaneous
  Country: US (occurrence: US)
  Receive Date: 20180712
  Receipt Date: 20180712
  Transmission Date: 20181010
  Serious: No
  Sender: FDA-Public Use
  Company Number: US-TEVA-2018-US-920910

PATIENT
  Sex: Male
  Weight: 15 kg

DRUGS (4)
  1. PEDIATRIC CLARITIN [Concomitant]
     Route: 065
  2. ALBUTEROL INHALER [Concomitant]
     Active Substance: ALBUTEROL
     Route: 065
  3. QVAR REDIHALER [Suspect]
     Active Substance: BECLOMETHASONE DIPROPIONATE
     Indication: ASTHMA
     Route: 065
     Dates: start: 20180627
  4. QVAR [Suspect]
     Active Substance: BECLOMETHASONE DIPROPIONATE
     Indication: ASTHMA
     Dosage: ONE TO TWO PUFFS ONCE DAILY WITH A SPACER
     Dates: start: 2016

REACTIONS (1)
  - Drug administered to patient of inappropriate age [Unknown]
